FAERS Safety Report 5494806-8 (Version None)
Quarter: 2007Q4

REPORT INFORMATION
  Report Type: 
  Country: None (occurrence: None)
  Receive Date: 20071015
  Receipt Date: 20060831
  Transmission Date: 20080405
  Serious: Yes (Other)
  Sender: FDA-Public Use
  Company Number: S06-USA-03508-01

PATIENT
  Age: 53 Year
  Sex: Male

DRUGS (4)
  1. LEXAPRO [Suspect]
     Indication: DEPRESSION
     Dosage: 10 MG QD PO
     Route: 048
  2. LEXAPRO [Suspect]
     Indication: IRRITABILITY
     Dosage: 10 MG QD PO
     Route: 048
  3. PEGASYS [Suspect]
     Indication: HEPATITIS C
     Dosage: 180 MCG QW SC
     Route: 058
     Dates: start: 20060112, end: 20060629
  4. AMBIEN [Suspect]
     Indication: INSOMNIA
     Dosage: 10 MG QHS

REACTIONS (1)
  - MOOD SWINGS [None]
